FAERS Safety Report 10158325 (Version 2)
Quarter: 2014Q2

REPORT INFORMATION
  Report Type: Spontaneous
  Country: US (occurrence: US)
  Receive Date: 20140507
  Receipt Date: 20140522
  Transmission Date: 20141212
  Serious: No
  Sender: FDA-Public Use
  Company Number: US-TEVA-480334USA

PATIENT
  Age: 27 Year
  Sex: Female
  Weight: 73.55 kg

DRUGS (1)
  1. TAKE ACTION [Suspect]
     Indication: POST COITAL CONTRACEPTION
     Dosage: 1.5 MILLIGRAM DAILY;
     Route: 048
     Dates: start: 20140407, end: 20140407

REACTIONS (5)
  - Mood altered [Recovered/Resolved]
  - Nausea [Recovered/Resolved]
  - Fatigue [Recovered/Resolved]
  - Breast tenderness [Recovered/Resolved]
  - Menstruation irregular [Recovered/Resolved]
